FAERS Safety Report 6453135-6 (Version None)
Quarter: 2009Q4

REPORT INFORMATION
  Report Type: 
  Country: None (occurrence: None)
  Receive Date: 20091124
  Receipt Date: 20091113
  Transmission Date: 20100525
  Serious: Yes (Other)
  Sender: FDA-Public Use
  Company Number: FI-PFIZER INC-2009297177

PATIENT
  Age: 75 Year
  Sex: Male

DRUGS (30)
  1. ZYVOXID [Suspect]
     Indication: SEPSIS
     Dosage: 600 MG, 2X/DAY
     Route: 048
     Dates: start: 20091008, end: 20091022
  2. LACTULOSE [Concomitant]
     Dosage: 20 ML, 1X/DAY
     Dates: end: 20090101
  3. DUREKAL [Concomitant]
     Indication: HYPOKALAEMIA
     Dosage: 1 G, 1X/DAY
     Route: 048
     Dates: end: 20090913
  4. DUREKAL [Concomitant]
     Dosage: UNK
     Route: 048
     Dates: start: 20090914, end: 20091103
  5. KALEORID [Concomitant]
     Indication: HYPOKALAEMIA
     Dosage: 2 G, 2X/DAY
     Route: 048
     Dates: start: 20091104
  6. MAREVAN ^ORION^ [Concomitant]
     Indication: ANTICOAGULANT THERAPY
     Dosage: UNK
     Route: 048
  7. ENOXAPARIN SODIUM [Concomitant]
     Dosage: 60 MG, 1X/DAY
     Dates: end: 20090101
  8. FERROUS GLYCINE SULFATE [Concomitant]
     Indication: ANAEMIA
     Dosage: 100 MG, 2X/DAY
     Route: 048
  9. FURESIS [Concomitant]
     Indication: DIURETIC THERAPY
     Dosage: 40 MG, 3X/DAY
     Dates: end: 20090913
  10. FURESIS [Concomitant]
     Dosage: 40 MG, 2X/DAY
     Dates: start: 20091104
  11. FUROMIN [Concomitant]
     Indication: DIURETIC THERAPY
     Dosage: UNK
     Route: 048
     Dates: start: 20090914, end: 20091103
  12. EMCONCOR [Concomitant]
     Dosage: 5 MG, 1X/DAY
     Route: 048
     Dates: end: 20090913
  13. EMCONCOR [Concomitant]
     Dosage: 5 MG, 1X/DAY
     Dates: start: 20091104
  14. EMCONCOR CHF [Concomitant]
     Dosage: 5 MG, 1X/DAY
     Dates: start: 20090914, end: 20091103
  15. CARDACE [Concomitant]
     Dosage: 5 MG, 1X/DAY
     Route: 048
  16. PARA-TABS [Concomitant]
     Dosage: 1 G, 3X/DAY
     Dates: end: 20090101
  17. PANACOD [Concomitant]
     Dosage: 3000 MG + 180 MG DAILY
     Route: 048
     Dates: start: 20090921
  18. SERENASE [Concomitant]
     Indication: AGITATION
     Dosage: 2MG THREE TIMES A DAY PLUS 4 MG OVERNIGHT
     Route: 048
     Dates: end: 20090901
  19. SERENASE [Concomitant]
     Indication: AGGRESSION
     Dosage: UNK
     Dates: start: 20090921, end: 20090924
  20. SERENASE [Concomitant]
     Dosage: UNK
     Route: 042
     Dates: start: 20090925, end: 20091006
  21. SERENASE [Concomitant]
     Dosage: UNK
     Route: 048
     Dates: start: 20091007
  22. DIAPAM [Concomitant]
     Dosage: 10 MG, 1X/DAY OVERNIGHT
     Dates: end: 20090101
  23. PROPOFOL [Concomitant]
     Indication: AGITATION
     Dosage: UNK
     Dates: start: 20090901, end: 20090901
  24. PROPOFOL [Concomitant]
     Indication: AGGRESSION
  25. ZINACEF [Concomitant]
     Indication: SEPSIS
     Dosage: UNK
     Dates: start: 20090916, end: 20090919
  26. ZINACEF [Concomitant]
     Dosage: UNK
     Dates: start: 20090921, end: 20090922
  27. VANCOMYCIN [Concomitant]
     Indication: SEPSIS
     Dosage: UNK
     Dates: start: 20090920, end: 20090920
  28. VANCOMYCIN [Concomitant]
     Dosage: UNK
     Route: 042
     Dates: start: 20090923, end: 20091104
  29. RIFAMPICIN [Concomitant]
     Indication: SEPSIS
     Dosage: UNK
     Dates: start: 20090921, end: 20090922
  30. RIMAPEN [Concomitant]
     Indication: SEPSIS
     Dosage: UNK
     Dates: start: 20090923, end: 20091007

REACTIONS (4)
  - ALANINE AMINOTRANSFERASE INCREASED [None]
  - ASPARTATE AMINOTRANSFERASE INCREASED [None]
  - BILIARY DILATATION [None]
  - BLOOD ALKALINE PHOSPHATASE INCREASED [None]
